FAERS Safety Report 21703813 (Version 3)
Quarter: 2023Q2

REPORT INFORMATION
  Report Type: Report from Study
  Country: US (occurrence: US)
  Receive Date: 20221209
  Receipt Date: 20230405
  Transmission Date: 20230722
  Serious: Yes (Other)
  Sender: FDA-Public Use
  Company Number: US-002147023-NVSC2022US281076

PATIENT
  Age: 38 Year
  Sex: Male
  Weight: 119.27 kg

DRUGS (13)
  1. DUREZOL [Suspect]
     Active Substance: DIFLUPREDNATE
     Indication: Iridocyclitis
     Dosage: 1 GTT DRP, QID (0.05ML, WITH A TAPER OF 1 DROP PER DAY EVERY THREE WEEKS)
     Route: 047
     Dates: start: 20220902, end: 20220923
  2. DUREZOL [Suspect]
     Active Substance: DIFLUPREDNATE
     Dosage: 1 GTT DRP, TID
     Route: 047
     Dates: start: 20220924, end: 20221014
  3. DUREZOL [Suspect]
     Active Substance: DIFLUPREDNATE
     Dosage: 1 GTT DRP, BID
     Route: 047
     Dates: start: 20221015, end: 20221104
  4. DUREZOL [Suspect]
     Active Substance: DIFLUPREDNATE
     Dosage: 1 GTT DROPS, QD
     Route: 047
     Dates: start: 20221105, end: 20221125
  5. DUREZOL [Suspect]
     Active Substance: DIFLUPREDNATE
     Dosage: 1 GTT DROPS, QOD (1 EVERY OTHER DAY FOR 3 WEEKS)
     Route: 047
     Dates: start: 20221126, end: 20221216
  6. LORATADINE [Concomitant]
     Active Substance: LORATADINE
     Indication: Seasonal allergy
     Dosage: UNK
     Route: 065
     Dates: start: 202006
  7. LORATADINE AND PSEUDOEPHEDRINE SULFATE [Concomitant]
     Active Substance: LORATADINE\PSEUDOEPHEDRINE SULFATE
     Indication: Seasonal allergy
     Dosage: UNK
     Route: 065
     Dates: start: 202006
  8. FLUTICASONE [Concomitant]
     Active Substance: FLUTICASONE
     Indication: Seasonal allergy
     Dosage: UNK
     Route: 065
     Dates: start: 20220219
  9. PROPRANOLOL [Concomitant]
     Active Substance: PROPRANOLOL HYDROCHLORIDE
     Indication: Hypertension
     Dosage: UNK
     Route: 065
     Dates: start: 20220502
  10. OMEPRAZOLE [Concomitant]
     Active Substance: OMEPRAZOLE
     Indication: Gastrooesophageal reflux disease
     Dosage: UNK
     Route: 065
     Dates: start: 20221005
  11. TETRACAINE [Concomitant]
     Active Substance: TETRACAINE
     Indication: Prophylaxis
     Dosage: UNK
     Route: 065
     Dates: start: 20201005
  12. TROPICAMIDE [Concomitant]
     Active Substance: TROPICAMIDE
     Indication: Prophylaxis
     Dosage: UNK
     Route: 065
     Dates: start: 20201005
  13. CHLORTHALIDONE [Concomitant]
     Active Substance: CHLORTHALIDONE
     Indication: Hypertension
     Dosage: UNK
     Route: 065
     Dates: start: 20220219

REACTIONS (1)
  - Cataract [Recovered/Resolved]

NARRATIVE: CASE EVENT DATE: 20221115
